FAERS Safety Report 6248715-7 (Version None)
Quarter: 2009Q2

REPORT INFORMATION
  Report Type: 
  Country: None (occurrence: None)
  Receive Date: 20090624
  Receipt Date: 20090608
  Transmission Date: 20091009
  Serious: Yes (Hospitalization)
  Sender: FDA-Public Use
  Company Number: 2008AL011733

PATIENT
  Age: 61 Year
  Sex: Female

DRUGS (5)
  1. DIGOXIN [Suspect]
     Indication: CARDIAC FAILURE
     Dosage: PO
     Route: 048
  2. TOPROL-XL [Concomitant]
  3. PROTONIX [Concomitant]
  4. ZYRTEC [Concomitant]
  5. KEFLEX [Concomitant]

REACTIONS (10)
  - DECREASED ACTIVITY [None]
  - DYSPNOEA [None]
  - ECONOMIC PROBLEM [None]
  - ILL-DEFINED DISORDER [None]
  - LEUKOCYTOSIS [None]
  - LOSS OF EMPLOYMENT [None]
  - MENTAL DISORDER [None]
  - MULTIPLE INJURIES [None]
  - OEDEMA [None]
  - PAIN [None]
